FAERS Safety Report 4514171-X (Version None)
Quarter: 2004Q4

REPORT INFORMATION
  Report Type: 
  Country: None (occurrence: None)
  Receive Date: 20041129
  Receipt Date: 20041115
  Transmission Date: 20050328
  Serious: Yes (Other)
  Sender: FDA-Public Use
  Company Number: 003553

PATIENT
  Age: 33 Year
  Sex: Female
  Weight: 75.7 kg

DRUGS (1)
  1. ESTROPIPATE [Suspect]
     Indication: ORAL CONTRACEPTION
     Dates: start: 20040828, end: 20040901

REACTIONS (3)
  - ABORTION SPONTANEOUS [None]
  - DRUG EXPOSURE DURING PREGNANCY [None]
  - PREGNANCY ON ORAL CONTRACEPTIVE [None]
